FAERS Safety Report 11893170 (Version 2)
Quarter: 2016Q2

REPORT INFORMATION
  Report Type: Report from Study
  Country: US (occurrence: US)
  Receive Date: 20160106
  Receipt Date: 20160404
  Transmission Date: 20160815
  Serious: Yes (Hospitalization)
  Sender: FDA-Public Use
  Company Number: US-SEATTLE GENETICS-2015SGN01601

PATIENT

DRUGS (15)
  1. BRENTUXIMAB VEDOTIN [Suspect]
     Active Substance: BRENTUXIMAB VEDOTIN
     Indication: HODGKIN^S DISEASE
     Dosage: 116 MG, UNK
     Route: 042
     Dates: start: 20150827
  2. VINBLASTINE [Suspect]
     Active Substance: VINBLASTINE
     Dosage: 13 MG, UNK
     Route: 042
     Dates: start: 20150827
  3. DACARBAZINE. [Suspect]
     Active Substance: DACARBAZINE
     Indication: HODGKIN^S DISEASE
     Dosage: 790 MG, UNK
     Route: 042
     Dates: start: 20150827
  4. DOXORUBICIN [Suspect]
     Active Substance: DOXORUBICIN
     Dosage: 52 MG, UNK
     Route: 042
     Dates: start: 20150924
  5. VINBLASTINE [Suspect]
     Active Substance: VINBLASTINE
     Dosage: 13 MG, UNK
     Route: 042
     Dates: start: 20150924
  6. DOXORUBICIN [Suspect]
     Active Substance: DOXORUBICIN
     Dosage: 53 MG, UNK
     Route: 042
     Dates: start: 20150910
  7. BRENTUXIMAB VEDOTIN [Suspect]
     Active Substance: BRENTUXIMAB VEDOTIN
     Dosage: 116 MG, UNK
     Route: 042
     Dates: start: 20150910
  8. BRENTUXIMAB VEDOTIN [Suspect]
     Active Substance: BRENTUXIMAB VEDOTIN
     Dosage: 108 UNK, UNK
     Route: 042
     Dates: start: 20151021
  9. VINBLASTINE [Suspect]
     Active Substance: VINBLASTINE
     Indication: HODGKIN^S DISEASE
     Dosage: 13 MG, UNK
     Route: 042
     Dates: start: 20150910
  10. DACARBAZINE. [Suspect]
     Active Substance: DACARBAZINE
     Dosage: 784 MG, UNK
     Route: 042
     Dates: start: 20150924
  11. VINBLASTINE [Suspect]
     Active Substance: VINBLASTINE
     Dosage: 12 MG, UNK
     Route: 042
     Dates: start: 20151021
  12. DACARBAZINE. [Suspect]
     Active Substance: DACARBAZINE
     Dosage: 790 MG, UNK
     Route: 042
     Dates: start: 20150910
  13. BRENTUXIMAB VEDOTIN [Suspect]
     Active Substance: BRENTUXIMAB VEDOTIN
     Dosage: 114 UNK, UNK
     Route: 042
     Dates: start: 20150924
  14. DOXORUBICIN [Suspect]
     Active Substance: DOXORUBICIN
     Indication: HODGKIN^S DISEASE
     Dosage: 53 MG, UNK
     Route: 042
     Dates: start: 20150827
  15. DOXORUBICIN [Suspect]
     Active Substance: DOXORUBICIN
     Dosage: 51 MG, UNK
     Route: 042
     Dates: start: 20151021

REACTIONS (1)
  - Pyrexia [Recovered/Resolved]

NARRATIVE: CASE EVENT DATE: 20151005
